FAERS Safety Report 6374757-7 (Version None)
Quarter: 2009Q3

REPORT INFORMATION
  Report Type: 
  Country: None (occurrence: None)
  Receive Date: 20090924
  Receipt Date: 20090915
  Transmission Date: 20100115
  Serious: Yes (Hospitalization, Disabling, Other)
  Sender: FDA-Public Use
  Company Number: PHEH2008US07165

PATIENT
  Sex: Male

DRUGS (10)
  1. ZOMETA [Suspect]
     Dosage: 1 MG, QMO
     Dates: start: 20020101, end: 20040801
  2. ZOMETA [Suspect]
     Dosage: 4 MG, QMO
     Route: 042
  3. LUPRON [Concomitant]
     Dosage: UNK
     Dates: start: 20020101
  4. RADIATION THERAPY [Concomitant]
  5. CLEOCIN [Concomitant]
  6. CLINDAMYCIN [Concomitant]
  7. CASODEX [Concomitant]
  8. CALCIUM [Concomitant]
  9. VITAMIN D [Concomitant]
  10. COUMADIN [Concomitant]

REACTIONS (75)
  - ABSCESS [None]
  - ACTIVITIES OF DAILY LIVING IMPAIRED [None]
  - ANAEMIA [None]
  - ANHEDONIA [None]
  - ANXIETY [None]
  - ARRHYTHMIA [None]
  - BACK PAIN [None]
  - BALANCE DISORDER [None]
  - BONE CYST [None]
  - BONE DISORDER [None]
  - BUNDLE BRANCH BLOCK LEFT [None]
  - BURSITIS [None]
  - CALCULUS URINARY [None]
  - CARDIAC FAILURE CONGESTIVE [None]
  - CARDIOMEGALY [None]
  - CATARACT [None]
  - CATARACT OPERATION [None]
  - CHRONIC OBSTRUCTIVE PULMONARY DISEASE [None]
  - CONDITION AGGRAVATED [None]
  - CONSTIPATION [None]
  - CORONARY ARTERY DISEASE [None]
  - DEAFNESS [None]
  - DEBRIDEMENT [None]
  - DECREASED ACTIVITY [None]
  - DEPRESSION [None]
  - DIZZINESS [None]
  - DYSAESTHESIA [None]
  - DYSPNOEA [None]
  - FALL [None]
  - FATIGUE [None]
  - GASTROOESOPHAGEAL REFLUX DISEASE [None]
  - GINGIVITIS [None]
  - GLAUCOMA [None]
  - HAEMORRHAGIC DIATHESIS [None]
  - HIGH FREQUENCY ABLATION [None]
  - HYPOAESTHESIA [None]
  - HYPOCOAGULABLE STATE [None]
  - HYPOREFLEXIA [None]
  - IMPAIRED HEALING [None]
  - INFLAMMATION [None]
  - INJURY [None]
  - INTERMITTENT CLAUDICATION [None]
  - JAW FRACTURE [None]
  - LEFT VENTRICULAR DYSFUNCTION [None]
  - LUMBAR SPINAL STENOSIS [None]
  - MACULAR DEGENERATION [None]
  - MASTICATION DISORDER [None]
  - MENTAL DISORDER [None]
  - METASTATIC NEOPLASM [None]
  - MUSCULAR WEAKNESS [None]
  - MUSCULOSKELETAL DISCOMFORT [None]
  - NEURALGIA [None]
  - OSTEOARTHRITIS [None]
  - OSTEOMYELITIS [None]
  - OSTEONECROSIS [None]
  - OSTEOPENIA [None]
  - PAIN [None]
  - PAIN IN EXTREMITY [None]
  - PANCREATITIS [None]
  - PHYSICAL DISABILITY [None]
  - POLYMYALGIA RHEUMATICA [None]
  - POSTURE ABNORMAL [None]
  - RENAL CYST [None]
  - SINUSITIS [None]
  - SMALL INTESTINAL OBSTRUCTION [None]
  - SOMNOLENCE [None]
  - SPINAL OSTEOARTHRITIS [None]
  - SYNCOPE [None]
  - THROMBOPHLEBITIS [None]
  - TOOTH EXTRACTION [None]
  - TOOTH IMPACTED [None]
  - TOOTHACHE [None]
  - URINARY INCONTINENCE [None]
  - VISUAL IMPAIRMENT [None]
  - WEIGHT DECREASED [None]
